FAERS Safety Report 4304244-9 (Version None)
Quarter: 2004Q1

REPORT INFORMATION
  Report Type: 
  Country: None (occurrence: None)
  Receive Date: 20040225
  Receipt Date: 20040219
  Transmission Date: 20041129
  Serious: Yes (Life-Threatening, Hospitalization, Disabling)
  Sender: FDA-Public Use
  Company Number: WAES 0402USA01507

PATIENT
  Age: 49 Year
  Sex: Male

DRUGS (2)
  1. CANCIDAS [Suspect]
     Indication: INFECTION
     Route: 042
     Dates: start: 20040201, end: 20040201
  2. CANCIDAS [Suspect]
     Route: 042
     Dates: start: 20040201, end: 20040201

REACTIONS (6)
  - ALANINE AMINOTRANSFERASE INCREASED [None]
  - ASPARTATE AMINOTRANSFERASE INCREASED [None]
  - CARDIO-RESPIRATORY ARREST [None]
  - HYPOALBUMINAEMIA [None]
  - HYPOGLYCAEMIA [None]
  - LIVER FUNCTION TEST ABNORMAL [None]
